FAERS Safety Report 7962762-6 (Version None)
Quarter: 2011Q4

REPORT INFORMATION
  Report Type: 
  Country: None (occurrence: None)
  Receive Date: 20111207
  Receipt Date: 20111201
  Transmission Date: 20120403
  Serious: Yes (Hospitalization, Other)
  Sender: FDA-Public Use
  Company Number: BR-ABBOTT-11P-020-0880188-00

PATIENT
  Sex: Male
  Weight: 81 kg

DRUGS (1)
  1. HUMIRA [Suspect]
     Indication: PSORIATIC ARTHROPATHY
     Route: 058
     Dates: start: 20110801

REACTIONS (9)
  - TUBERCULOSIS [None]
  - PYREXIA [None]
  - DIZZINESS [None]
  - WEIGHT DECREASED [None]
  - MALAISE [None]
  - IMMUNODEFICIENCY [None]
  - VOMITING [None]
  - BONE PAIN [None]
  - ASTHENIA [None]
